FAERS Safety Report 8183469-9 (Version None)
Quarter: 2012Q1

REPORT INFORMATION
  Report Type: 
  Country: None (occurrence: None)
  Receive Date: 20120305
  Receipt Date: 20120224
  Transmission Date: 20120608
  Serious: Yes (Hospitalization)
  Sender: FDA-Public Use
  Company Number: US-BAYER-2011-022078

PATIENT
  Age: 49 Year
  Sex: Female
  Weight: 63.492 kg

DRUGS (3)
  1. HYDROCODONE BITARTRATE + IBUPROFEN [Concomitant]
     Dosage: UNK
     Dates: start: 20080407, end: 20080414
  2. YAZ [Suspect]
     Indication: CONTRACEPTION
     Dosage: UNK
     Dates: start: 20071101, end: 20080201
  3. YASMIN [Suspect]
     Indication: CONTRACEPTION
     Dosage: UNK
     Dates: start: 20071101

REACTIONS (10)
  - GALLBLADDER DISORDER [None]
  - SCAR [None]
  - CONSTIPATION [None]
  - ABDOMINAL DISTENSION [None]
  - DYSPEPSIA [None]
  - ANXIETY [None]
  - CHOLECYSTITIS CHRONIC [None]
  - FLATULENCE [None]
  - DIARRHOEA [None]
  - DEPRESSION [None]
